FAERS Safety Report 23329903 (Version 1)
Quarter: 2023Q4

REPORT INFORMATION
  Report Type: Report from Study
  Country: US (occurrence: US)
  Receive Date: 20231222
  Receipt Date: 20231222
  Transmission Date: 20240110
  Serious: Yes (Other)
  Sender: FDA-Public Use
  Company Number: US-TAKEDA-US202000033

PATIENT
  Age: 59 Year
  Sex: Female

DRUGS (2)
  1. HUMAN IMMUNOGLOBULIN G [Suspect]
     Active Substance: HUMAN IMMUNOGLOBULIN G
     Indication: Immunodeficiency common variable
     Dosage: 16 GRAM, Q2WEEKS
     Route: 065
  2. HYQVIA [Suspect]
     Active Substance: HUMAN IMMUNOGLOBULIN G\HYALURONIDASE (HUMAN RECOMBINANT)
     Indication: Immunodeficiency common variable
     Dosage: UNK
     Route: 065

REACTIONS (8)
  - Pneumonia [Recovering/Resolving]
  - Illness [Unknown]
  - Breast inflammation [Unknown]
  - Infusion site pain [Unknown]
  - Swelling [Unknown]
  - Rash [Unknown]
  - Incorrect dose administered [Unknown]
  - Product availability issue [Unknown]

NARRATIVE: CASE EVENT DATE: 20200102
